FAERS Safety Report 12915319 (Version 1)
Quarter: 2016Q4

REPORT INFORMATION
  Report Type: Spontaneous
  Country: US (occurrence: US)
  Receive Date: 20161106
  Receipt Date: 20161106
  Transmission Date: 20170207
  Serious: No
  Sender: FDA-Public Use
  Company Number: US-RELYPSA-RLY2016002735

PATIENT
  Age: 55 Year
  Sex: Male

DRUGS (18)
  1. GABAPENTIN. [Concomitant]
     Active Substance: GABAPENTIN
  2. MIDODRINE [Concomitant]
     Active Substance: MIDODRINE
  3. SENNA                              /00142201/ [Concomitant]
     Active Substance: SENNA LEAF
     Dosage: UNK, OCCASSIONALLY
  4. VELTASSA [Suspect]
     Active Substance: PATIROMER
     Indication: BLOOD POTASSIUM ABNORMAL
     Dosage: 8.4 G, QD
     Route: 048
     Dates: start: 201609
  5. AMLODIPINE [Concomitant]
     Active Substance: AMLODIPINE BESYLATE
  6. MINOXIDIL. [Concomitant]
     Active Substance: MINOXIDIL
  7. HYDROCODONE [Concomitant]
     Active Substance: HYDROCODONE
  8. OMEPRAZOLE. [Concomitant]
     Active Substance: OMEPRAZOLE
  9. FENTANYL. [Concomitant]
     Active Substance: FENTANYL
  10. CLONIDINE. [Concomitant]
     Active Substance: CLONIDINE
  11. ASPIRIN                            /00002701/ [Concomitant]
     Active Substance: ASPIRIN
     Dosage: 81 MG, UNKNOWN
  12. FOSRENOL [Concomitant]
     Active Substance: LANTHANUM CARBONATE
  13. LABETALOL [Concomitant]
     Active Substance: LABETALOL\LABETALOL HYDROCHLORIDE
  14. PLAVIX [Concomitant]
     Active Substance: CLOPIDOGREL BISULFATE
  15. PROAIR HFA [Concomitant]
     Active Substance: ALBUTEROL SULFATE
  16. HYDROCODONE BITARTRATE AND ACETAMINOPHEN [Concomitant]
     Active Substance: ACETAMINOPHEN\HYDROCODONE BITARTRATE
  17. LISINOPRIL. [Concomitant]
     Active Substance: LISINOPRIL
  18. XANAX [Concomitant]
     Active Substance: ALPRAZOLAM

REACTIONS (1)
  - Gastrointestinal pain [Not Recovered/Not Resolved]

NARRATIVE: CASE EVENT DATE: 201609
